FAERS Safety Report 21793615 (Version 1)
Quarter: 2022Q4

REPORT INFORMATION
  Report Type: Spontaneous
  Country: AE (occurrence: AE)
  Receive Date: 20221229
  Receipt Date: 20221229
  Transmission Date: 20230113
  Serious: Yes (Hospitalization, Other)
  Sender: FDA-Public Use
  Company Number: AE-CPL-003188

PATIENT
  Age: 87 Year
  Sex: Female

DRUGS (3)
  1. VERAPAMIL [Suspect]
     Active Substance: VERAPAMIL HYDROCHLORIDE
     Indication: Hypertension
     Dosage: DOSAGE FORM: SUSTAINED-RELEASE
  2. GLICLAZIDE [Concomitant]
     Active Substance: GLICLAZIDE
  3. ATORVASTATIN [Concomitant]
     Active Substance: ATORVASTATIN

REACTIONS (2)
  - BRASH syndrome [Unknown]
  - Toxicity to various agents [Unknown]
